FAERS Safety Report 15144012 (Version 1)
Quarter: 2018Q3

REPORT INFORMATION
  Report Type: Spontaneous
  Country: US (occurrence: US)
  Receive Date: 20180713
  Receipt Date: 20180713
  Transmission Date: 20181010
  Serious: Yes (Hospitalization, Other)
  Sender: FDA-Public Use
  Company Number: US-SHIRE-US201824248

PATIENT
  Sex: Female
  Weight: 27.66 kg

DRUGS (3)
  1. IRON [Concomitant]
     Active Substance: IRON
     Indication: IRON DEFICIENCY
  2. PENTASA [Suspect]
     Active Substance: MESALAMINE
     Indication: IRRITABLE BOWEL SYNDROME
     Dosage: THREE 250 MG TABLETS, 2X/DAY:BID
     Route: 048
     Dates: start: 201804, end: 201805
  3. PENTASA [Suspect]
     Active Substance: MESALAMINE
     Indication: COLITIS ULCERATIVE
     Dosage: FOUR 250 MG TABLETS, 2X/DAY:BID
     Route: 048
     Dates: start: 201805

REACTIONS (3)
  - Adverse event [Unknown]
  - Drug administered to patient of inappropriate age [Not Recovered/Not Resolved]
  - Inflammation [Not Recovered/Not Resolved]

NARRATIVE: CASE EVENT DATE: 2018
